FAERS Safety Report 5828738-X (Version None)
Quarter: 2008Q3

REPORT INFORMATION
  Report Type: 
  Country: None (occurrence: None)
  Receive Date: 20080731
  Receipt Date: 20080723
  Transmission Date: 20090109
  Serious: Yes (Hospitalization)
  Sender: FDA-Public Use
  Company Number: FR-ELI_LILLY_AND_COMPANY-FR200807004617

PATIENT
  Sex: Male

DRUGS (2)
  1. GEMZAR [Suspect]
     Indication: LUNG SQUAMOUS CELL CARCINOMA STAGE IV
     Dosage: UNK, UNKNOWN
     Route: 042
     Dates: start: 20080428
  2. CISPLATIN [Concomitant]
     Indication: LUNG SQUAMOUS CELL CARCINOMA STAGE IV
     Dosage: UNK, UNKNOWN
     Route: 042

REACTIONS (5)
  - FEBRILE BONE MARROW APLASIA [None]
  - INFLAMMATION [None]
  - INJECTION SITE PAIN [None]
  - NECROSIS [None]
  - PETECHIAE [None]
